FAERS Safety Report 25005565 (Version 1)
Quarter: 2025Q1

REPORT INFORMATION
  Report Type: Spontaneous
  Country: FR (occurrence: FR)
  Receive Date: 20250224
  Receipt Date: 20250224
  Transmission Date: 20250409
  Serious: Yes (Other)
  Sender: ALEXION PHARMACEUTICALS
  Company Number: None

PATIENT
  Age: 3 Month
  Weight: 6.95 kg

DRUGS (1)
  1. NIRSEVIMAB [Suspect]
     Active Substance: NIRSEVIMAB
     Indication: Antiviral prophylaxis

REACTIONS (2)
  - Respiratory syncytial virus bronchiolitis [Recovering/Resolving]
  - Drug ineffective [Recovering/Resolving]
